FAERS Safety Report 4944104-3 (Version None)
Quarter: 2006Q1

REPORT INFORMATION
  Report Type: 
  Country: None (occurrence: None)
  Receive Date: 20060309
  Receipt Date: 20060224
  Transmission Date: 20060701
  Serious: Yes (Other)
  Sender: FDA-Public Use
  Company Number: HQWYE073201MAR06

PATIENT
  Sex: 0

DRUGS (1)
  1. ZOSYN [Suspect]

REACTIONS (8)
  - GASTROINTESTINAL HAEMORRHAGE [None]
  - HEPATITIS [None]
  - MYALGIA [None]
  - NEUTROPENIA [None]
  - PYREXIA [None]
  - RENAL FAILURE [None]
  - RESPIRATORY FAILURE [None]
  - THROMBOCYTOPENIA [None]
